FAERS Safety Report 10925153 (Version 1)
Quarter: 2015Q1

REPORT INFORMATION
  Report Type: Spontaneous
  Country: US (occurrence: None)
  Receive Date: 20150316
  Receipt Date: 20150316
  Transmission Date: 20150721
  Serious: No
  Sender: FDA-Public Use
  Company Number: None

PATIENT
  Age: 1 Year
  Sex: Male
  Weight: 12.25 kg

DRUGS (1)
  1. TAMIFLU [Suspect]
     Active Substance: OSELTAMIVIR PHOSPHATE
     Indication: INFLUENZA LIKE ILLNESS
     Dosage: TAKEN BY MOUTH
     Route: 048
     Dates: start: 20150205, end: 20150210

REACTIONS (6)
  - Crying [None]
  - Screaming [None]
  - Constipation [None]
  - Irritability [None]
  - Skin disorder [None]
  - Dry skin [None]

NARRATIVE: CASE EVENT DATE: 20150205
